FAERS Safety Report 7404152-0 (Version None)
Quarter: 2011Q2

REPORT INFORMATION
  Report Type: 
  Country: None (occurrence: None)
  Receive Date: 20110408
  Receipt Date: 20110330
  Transmission Date: 20111010
  Serious: Yes (Other)
  Sender: FDA-Public Use
  Company Number: US-ASTRAZENECA-2011SE18208

PATIENT
  Age: 55 Year
  Sex: Male
  Weight: 81.6 kg

DRUGS (12)
  1. ZOCOR [Concomitant]
  2. INDERAL LA [Concomitant]
  3. LORAZEPAM [Concomitant]
  4. MULTI-VITAMIN [Concomitant]
  5. NITROGLYCERIN [Concomitant]
  6. CYMBALTA [Concomitant]
  7. NEXIUM [Suspect]
     Route: 048
  8. LISINOPRIL [Concomitant]
  9. QUETIAPINE [Concomitant]
  10. CLONAZEPAM [Concomitant]
  11. MIRTAZAPINE [Concomitant]
  12. AMBIEN [Concomitant]

REACTIONS (2)
  - SPINAL FRACTURE [None]
  - OSTEOPOROSIS [None]
